FAERS Safety Report 20202481 (Version 1)
Quarter: 2021Q4

REPORT INFORMATION
  Report Type: Spontaneous
  Country: US (occurrence: US)
  Receive Date: 20211217
  Receipt Date: 20211217
  Transmission Date: 20220303
  Serious: No
  Sender: FDA-Public Use
  Company Number: US-CELGENE-USA-20211203742

PATIENT
  Age: 74 Year
  Sex: Male

DRUGS (4)
  1. VIDAZA [Suspect]
     Active Substance: AZACITIDINE
     Indication: Plasma cell myeloma
     Route: 058
     Dates: start: 202102
  2. VIDAZA [Suspect]
     Active Substance: AZACITIDINE
     Indication: Myelodysplastic syndrome
  3. ATENOLOL [Concomitant]
     Active Substance: ATENOLOL
     Indication: Product used for unknown indication
     Route: 065
  4. FLECAINIDE [Concomitant]
     Active Substance: FLECAINIDE
     Indication: Product used for unknown indication
     Route: 065

REACTIONS (5)
  - Gait disturbance [Recovered/Resolved]
  - Loss of personal independence in daily activities [Recovered/Resolved]
  - Dizziness [Recovered/Resolved]
  - Dyspnoea [Recovered/Resolved]
  - Full blood count decreased [Unknown]

NARRATIVE: CASE EVENT DATE: 20210101
